FAERS Safety Report 19094739 (Version 1)
Quarter: 2021Q2

REPORT INFORMATION
  Report Type: Spontaneous
  Country: JP (occurrence: JP)
  Receive Date: 20210405
  Receipt Date: 20210405
  Transmission Date: 20210717
  Serious: Yes (Hospitalization, Other)
  Sender: FDA-Public Use
  Company Number: JP-VALIDUS PHARMACEUTICALS LLC-JP-2021VAL000584

PATIENT
  Sex: Male

DRUGS (2)
  1. SPIRONOLACTONE. [Concomitant]
     Active Substance: SPIRONOLACTONE
     Indication: PRODUCT USED FOR UNKNOWN INDICATION
     Dosage: UNK
  2. LASIX [Suspect]
     Active Substance: FUROSEMIDE
     Indication: ASCITES
     Dosage: UNK
     Route: 048

REACTIONS (11)
  - Blood urea increased [Recovering/Resolving]
  - Ammonia increased [Recovering/Resolving]
  - Hepatic encephalopathy [Recovering/Resolving]
  - Loss of consciousness [Recovering/Resolving]
  - Speech disorder [Recovering/Resolving]
  - Mydriasis [Recovering/Resolving]
  - Dehydration [Recovering/Resolving]
  - Blood creatinine increased [Recovering/Resolving]
  - Molar ratio of total branched-chain amino acid to tyrosine [Recovering/Resolving]
  - Pupillary light reflex tests abnormal [Recovering/Resolving]
  - Asterixis [Recovering/Resolving]
